FAERS Safety Report 7278339-4 (Version None)
Quarter: 2011Q1

REPORT INFORMATION
  Report Type: 
  Country: None (occurrence: None)
  Receive Date: 20110207
  Receipt Date: 20110127
  Transmission Date: 20110831
  Serious: Yes (Other)
  Sender: FDA-Public Use
  Company Number: FR-ASTRAZENECA-2011SE05336

PATIENT
  Age: 62 Year
  Sex: Female

DRUGS (1)
  1. CRESTOR [Suspect]
     Indication: DYSLIPIDAEMIA
     Route: 048
     Dates: start: 20080101, end: 20101222

REACTIONS (1)
  - POLYNEUROPATHY [None]
